FAERS Safety Report 13943077 (Version 1)
Quarter: 2017Q3

REPORT INFORMATION
  Report Type: Spontaneous
  Country: US (occurrence: None)
  Receive Date: 20170907
  Receipt Date: 20170907
  Transmission Date: 20171128
  Serious: No
  Sender: FDA-Public Use
  Company Number: None

PATIENT
  Age: 65 Year
  Sex: Male

DRUGS (1)
  1. TALTZ [Suspect]
     Active Substance: IXEKIZUMAB
     Indication: MYOCARDITIS
     Dosage: 160MG AT 0 THEN 80MG AT 2,64,6,8,10 AND 12
     Route: 058
     Dates: start: 20170816

REACTIONS (8)
  - Nervousness [None]
  - Condition aggravated [None]
  - Fatigue [None]
  - Anxiety [None]
  - Nausea [None]
  - Musculoskeletal stiffness [None]
  - Depression [None]
  - Sleep disorder [None]

NARRATIVE: CASE EVENT DATE: 20170816
